FAERS Safety Report 8416486-1 (Version None)
Quarter: 2012Q2

REPORT INFORMATION
  Report Type: 
  Country: None (occurrence: None)
  Receive Date: 20120530
  Receipt Date: 20120524
  Transmission Date: 20120825
  Serious: Yes (Death, Hospitalization)
  Sender: FDA-Public Use
  Company Number: 2012SP027883

PATIENT
  Age: 53 Year
  Sex: Female
  Weight: 52 kg

DRUGS (6)
  1. VICTRELIS [Suspect]
     Indication: HEPATITIS C
     Dosage: 4 DF;TID;
     Dates: start: 20120101, end: 20120523
  2. VICTRELIS [Suspect]
     Indication: HEPATIC CIRRHOSIS
     Dosage: 4 DF;TID;
     Dates: start: 20120101, end: 20120523
  3. PEGASYS [Suspect]
     Indication: HEPATITIS C
     Dosage: 135 MCG;QW;SC
     Route: 058
     Dates: start: 20120101, end: 20120523
  4. PEGASYS [Suspect]
     Indication: HEPATIC CIRRHOSIS
     Dosage: 135 MCG;QW;SC
     Route: 058
     Dates: start: 20120101, end: 20120523
  5. RIBAVIRIN [Suspect]
     Indication: HEPATIC CIRRHOSIS
     Dosage: 2 DF;BID;
     Dates: start: 20120101, end: 20120523
  6. RIBAVIRIN [Suspect]
     Indication: HEPATITIS C
     Dosage: 2 DF;BID;
     Dates: start: 20120101, end: 20120523

REACTIONS (4)
  - STAPHYLOCOCCAL SEPSIS [None]
  - PNEUMONIA [None]
  - RENAL FAILURE [None]
  - HEPATIC FAILURE [None]
